FAERS Safety Report 5057096-6 (Version None)
Quarter: 2006Q2

REPORT INFORMATION
  Report Type: 
  Country: None (occurrence: None)
  Receive Date: 20060622
  Receipt Date: 20060420
  Transmission Date: 20061013
  Serious: Yes (Death)
  Sender: FDA-Public Use
  Company Number: US-JNJFOC-20060405752

PATIENT
  Age: 18 Year
  Sex: Male

DRUGS (3)
  1. FENTANYL [Suspect]
     Indication: INTENTIONAL DRUG MISUSE
     Dosage: INHALATION
     Route: 055
  2. ALCOHOL (ETHANOL) [Suspect]
     Indication: INTENTIONAL DRUG MISUSE
  3. HEROIN (DIAMORPHINE) UNKNOWN [Suspect]
     Indication: INTENTIONAL DRUG MISUSE
     Dosage: INHALATION
     Route: 055

REACTIONS (2)
  - DRUG TOXICITY [None]
  - OVERDOSE [None]
